FAERS Safety Report 9777001 (Version 2)
Quarter: 2014Q1

REPORT INFORMATION
  Report Type: Spontaneous
  Country: IN (occurrence: IN)
  Receive Date: 20131221
  Receipt Date: 20140103
  Transmission Date: 20141002
  Serious: Yes (Other)
  Sender: FDA-Public Use
  Company Number: IN-SUN PHARMACEUTICAL INDUSTRIES LTD-2013SUN05222

PATIENT
  Sex: 0

DRUGS (1)
  1. OXCARBAZEPINE TABLETS, 300 MG [Suspect]
     Indication: PRODUCT USED FOR UNKNOWN INDICATION
     Dosage: UNK
     Route: 065
     Dates: end: 2005

REACTIONS (1)
  - Weight increased [Not Recovered/Not Resolved]
